FAERS Safety Report 5600420-3 (Version None)
Quarter: 2008Q1

REPORT INFORMATION
  Report Type: 
  Country: None (occurrence: None)
  Receive Date: 20080118
  Receipt Date: 20080114
  Transmission Date: 20080703
  Serious: Yes (Death, Other)
  Sender: FDA-Public Use
  Company Number: 163-21880-07120423

PATIENT
  Age: 72 Year
  Sex: Female

DRUGS (2)
  1. REVLIMID [Suspect]
     Indication: MULTIPLE MYELOMA
     Dosage: 10 MG, 1 IN 1 D, ORAL
     Route: 048
     Dates: start: 20071023, end: 20071206
  2. IVIG (IMMUNOGLOBULIN) [Concomitant]

REACTIONS (7)
  - AUTOLOGOUS BONE MARROW TRANSPLANTATION THERAPY [None]
  - DISEASE PROGRESSION [None]
  - FALL [None]
  - HAEMORRHAGE INTRACRANIAL [None]
  - IDIOPATHIC THROMBOCYTOPENIC PURPURA [None]
  - MALIGNANT NEOPLASM PROGRESSION [None]
  - MULTIPLE MYELOMA [None]
